FAERS Safety Report 9768974 (Version 1)
Quarter: 2013Q4

REPORT INFORMATION
  Report Type: Not Available
  Country: FR (occurrence: FR)
  Receive Date: 20131218
  Receipt Date: 20131218
  Transmission Date: 20140711
  Serious: Yes (Hospitalization)
  Sender: FDA-Public Use
  Company Number: FR-BEH-2013039558

PATIENT
  Age: 55 Year
  Sex: Female

DRUGS (16)
  1. PRIVIGEN [Suspect]
     Dosage: 2 VIALS 20 G
     Route: 042
     Dates: start: 20131008, end: 20131008
  2. PRIVIGEN [Suspect]
     Dosage: 1 VIAL
     Route: 042
     Dates: start: 20131009, end: 20131009
  3. PRIVIGEN [Suspect]
     Dosage: 1 VIAL
     Route: 042
     Dates: start: 20131009, end: 20131009
  4. PRIVIGEN [Suspect]
     Dosage: 2 VIALS 5 G
     Route: 042
     Dates: start: 20131009, end: 20131009
  5. PRIVIGEN [Suspect]
     Dosage: 1 VIAL
     Route: 042
     Dates: start: 20131010, end: 20131010
  6. PRIVIGEN [Suspect]
     Dosage: 2 VIALS 10 G
     Route: 042
     Dates: start: 20131010, end: 20131010
  7. PRIVIGEN [Suspect]
     Dosage: 1 VIAL
     Route: 042
     Dates: start: 20131011, end: 20131011
  8. PRIVIGEN [Suspect]
     Dosage: 1 VIAL
     Route: 042
     Dates: start: 20131011, end: 20131011
  9. PRIVIGEN [Suspect]
     Dosage: 2 VIALS 5 G
     Route: 042
     Dates: start: 20131011, end: 20131011
  10. VERSATIS [Concomitant]
  11. CACIT VITAMIN D3 [Concomitant]
  12. CELLCEPT [Concomitant]
  13. DOLIPRANE [Concomitant]
  14. HYDROCORTISONE [Concomitant]
  15. ATARAX [Concomitant]
  16. INEXIUM [Concomitant]

REACTIONS (3)
  - Haemolytic anaemia [Recovered/Resolved]
  - Asthenia [Recovered/Resolved]
  - Body temperature increased [Recovered/Resolved]
